FAERS Safety Report 17074070 (Version 3)
Quarter: 2020Q1

REPORT INFORMATION
  Report Type: Other
  Country: DE (occurrence: DE)
  Receive Date: 20191126
  Receipt Date: 20200116
  Transmission Date: 20200409
  Serious: Yes (Death, Life-Threatening, Hospitalization, Other)
  Sender: FDA-Public Use
  Company Number: DE-CELLTRION INC.-2019DE026823

PATIENT

DRUGS (52)
  1. RITUXIMAB (UNKNOWN) [Suspect]
     Active Substance: RITUXIMAB
     Dosage: 730 MG, UNK
     Route: 041
     Dates: start: 20190128
  2. DOXORUBICIN [Suspect]
     Active Substance: DOXORUBICIN
     Dosage: 49 MG, (INFUSION RATE 2.0 ML/MIN FROM 09:20 TO 10:43)
     Route: 041
     Dates: start: 20181019, end: 20181019
  3. PREDNISONE. [Suspect]
     Active Substance: PREDNISONE
     Dosage: 500 MG, UNK
     Route: 048
     Dates: start: 20181119, end: 20181123
  4. PREDNISONE. [Suspect]
     Active Substance: PREDNISONE
     Dosage: 500 MG, UNK
     Route: 048
     Dates: start: 20181217, end: 20181221
  5. RANITIDIN [Concomitant]
     Active Substance: RANITIDINE HYDROCHLORIDE
     Indication: PROPHYLAXIS
     Dosage: UNK
     Route: 042
     Dates: start: 20181002, end: 20181217
  6. RITUXIMAB (UNKNOWN) [Suspect]
     Active Substance: RITUXIMAB
     Dosage: 730 MG, UNK
     Route: 041
     Dates: start: 20181119, end: 20181119
  7. RITUXIMAB (UNKNOWN) [Suspect]
     Active Substance: RITUXIMAB
     Dosage: 730 MG, UNK
     Route: 041
     Dates: start: 20181119, end: 20181119
  8. RITUXIMAB (UNKNOWN) [Suspect]
     Active Substance: RITUXIMAB
     Dosage: 730 MG, UNK
     Route: 041
     Dates: start: 20190107, end: 20190107
  9. CYCLOPHOSPHAMIDE. [Suspect]
     Active Substance: CYCLOPHOSPHAMIDE
     Indication: DIFFUSE LARGE B-CELL LYMPHOMA
     Dosage: 781 MG, INFUSION RATE 16.6 (ML/MIN)
     Route: 041
     Dates: start: 20181003, end: 20181003
  10. RITUXIMAB (UNKNOWN) [Suspect]
     Active Substance: RITUXIMAB
     Dosage: 730 MG, UNK
     Route: 041
     Dates: start: 20181105, end: 20181105
  11. VINCRISTINE [Suspect]
     Active Substance: VINCRISTINE
     Dosage: 1 MG, (INFUSION RATE 6.6 ML/MIN FROM 9:50 TO 10:10)
     Route: 041
     Dates: start: 20181120, end: 20181120
  12. DOXORUBICIN [Suspect]
     Active Substance: DOXORUBICIN
     Indication: DIFFUSE LARGE B-CELL LYMPHOMA
     Dosage: 49 MG, INFUSION RATE 2.0 (ML/MIN)
     Route: 041
     Dates: start: 20181003, end: 20181003
  13. RITUXIMAB (UNKNOWN) [Suspect]
     Active Substance: RITUXIMAB
     Dosage: 730 MG, UNK
     Route: 041
     Dates: start: 20181018, end: 20181018
  14. RITUXIMAB (UNKNOWN) [Suspect]
     Active Substance: RITUXIMAB
     Dosage: 730 MG, UNK
     Route: 041
     Dates: start: 20181203, end: 20181203
  15. RITUXIMAB (UNKNOWN) [Suspect]
     Active Substance: RITUXIMAB
     Dosage: 730 MG, UNK
     Route: 041
     Dates: start: 20181217, end: 20181217
  16. CYCLOPHOSPHAMIDE. [Suspect]
     Active Substance: CYCLOPHOSPHAMIDE
     Dosage: 781 MG, (INFUSION RATE16.6 ML/MIN FROM 11:10 TO 12:12)
     Route: 041
     Dates: start: 20181019, end: 20181019
  17. DOXORUBICIN [Suspect]
     Active Substance: DOXORUBICIN
     Dosage: 49 MG, (INFUSION RATE 2.0 ML/MIN FROM 10:40 TO 11:15)
     Route: 041
     Dates: start: 20181120, end: 20181120
  18. PREDNISONE. [Suspect]
     Active Substance: PREDNISONE
     Dosage: 500 MG, UNK
     Route: 048
     Dates: start: 20181018, end: 20181022
  19. PREDNISONE. [Suspect]
     Active Substance: PREDNISONE
     Dosage: 500 MG, UNK
     Route: 048
     Dates: start: 20181105, end: 20181109
  20. MESNA. [Concomitant]
     Active Substance: MESNA
     Indication: PROPHYLAXIS
     Dosage: UNK
     Route: 042
     Dates: start: 20181003, end: 20181118
  21. PREDNISOLONE. [Concomitant]
     Active Substance: PREDNISOLONE
     Indication: PROPHYLAXIS
     Dosage: UNK
     Route: 042
     Dates: start: 20181002, end: 20181217
  22. RITUXIMAB (UNKNOWN) [Suspect]
     Active Substance: RITUXIMAB
     Dosage: 730 MG, UNK
     Route: 041
     Dates: start: 20181203, end: 20181203
  23. CLEMASTIN [Concomitant]
     Active Substance: CLEMASTINE
     Indication: PROPHYLAXIS
     Dosage: UNK
     Route: 042
     Dates: start: 20181002, end: 20181217
  24. CYCLOPHOSPHAMIDE. [Suspect]
     Active Substance: CYCLOPHOSPHAMIDE
     Dosage: 781 MG, (INFUSION RATE16.6 ML/MIN FROM 12:30 TO 13:40)
     Route: 041
     Dates: start: 20181204, end: 20181204
  25. VINCRISTINE [Suspect]
     Active Substance: VINCRISTINE
     Dosage: 1 MG, (INFUSION RATE 6.6 ML/MIN FROM 9:05 TO 9:20)
     Route: 041
     Dates: start: 20181019, end: 20181019
  26. PREDNISONE. [Suspect]
     Active Substance: PREDNISONE
     Indication: DIFFUSE LARGE B-CELL LYMPHOMA
     Dosage: 500 MG, UNK
     Route: 048
     Dates: start: 20181002, end: 20181006
  27. CERTOPARIN SODIUM [Concomitant]
     Active Substance: CERTOPARIN SODIUM
     Indication: PROPHYLAXIS
     Dosage: UNK
     Route: 058
     Dates: start: 20181225, end: 20190103
  28. L-THYROXINE [LEVOTHYROXINE SODIUM] [Concomitant]
     Active Substance: LEVOTHYROXINE SODIUM
     Indication: HYPOTHYROIDISM
     Dosage: UNK
     Route: 048
     Dates: start: 20030101
  29. RITUXIMAB (UNKNOWN) [Suspect]
     Active Substance: RITUXIMAB
     Indication: DIFFUSE LARGE B-CELL LYMPHOMA
     Dosage: 730 MG, UNK
     Route: 041
     Dates: start: 20181002, end: 20181002
  30. RITUXIMAB (UNKNOWN) [Suspect]
     Active Substance: RITUXIMAB
     Dosage: 730 MG, UNK
     Route: 041
     Dates: start: 20181105, end: 20181105
  31. RITUXIMAB (UNKNOWN) [Suspect]
     Active Substance: RITUXIMAB
     Dosage: 730 MG, UNK
     Route: 041
     Dates: start: 20190107, end: 20190107
  32. CYCLOPHOSPHAMIDE. [Suspect]
     Active Substance: CYCLOPHOSPHAMIDE
     Dosage: 781 MG, (INFUSION RATE16.6 ML/MIN FROM 11:00 TO 12:00)
     Route: 041
     Dates: start: 20181106, end: 20181106
  33. CYCLOPHOSPHAMIDE. [Suspect]
     Active Substance: CYCLOPHOSPHAMIDE
     Dosage: 781 MG, (INFUSION RATE16.6 ML/MIN FROM 11:30 TO 12:35)
     Route: 041
     Dates: start: 20181120, end: 20181120
  34. VINCRISTINE [Suspect]
     Active Substance: VINCRISTINE
     Dosage: 1 MG, (INFUSION RATE 6.6 ML/MIN FROM 9:28 TO 11:00)
     Route: 041
     Dates: start: 20181106, end: 20181106
  35. DOXORUBICIN [Suspect]
     Active Substance: DOXORUBICIN
     Dosage: 49 MG, (INFUSION RATE 2.0 ML/MIN FROM 11:00 TO 12:15)
     Route: 041
     Dates: start: 20181204, end: 20181204
  36. PREDNISONE. [Suspect]
     Active Substance: PREDNISONE
     Dosage: 500 MG, UNK
     Route: 048
     Dates: start: 20181203, end: 20181207
  37. METOCLOPRAMID [METOCLOPRAMIDE HYDROCHLORIDE] [Concomitant]
     Indication: PROPHYLAXIS
     Dosage: UNK
     Route: 048
     Dates: start: 20181003, end: 20181221
  38. INSULIN [Concomitant]
     Active Substance: INSULIN NOS
     Indication: DIABETES MELLITUS
     Dosage: UNK
     Route: 058
     Dates: start: 19980101
  39. PARACETAMOL;SODIUM BICARBONATE [Concomitant]
     Indication: PROPHYLAXIS
     Dosage: UNK
     Route: 048
     Dates: start: 20181002
  40. ONDANSETRON [Concomitant]
     Active Substance: ONDANSETRON
     Indication: PROPHYLAXIS
     Dosage: UNK
     Route: 042
     Dates: start: 20181002, end: 20181217
  41. BISOPROLOL [Concomitant]
     Active Substance: BISOPROLOL
     Indication: CORONARY ARTERY DISEASE
     Dosage: UNK
     Route: 048
     Dates: start: 20040101
  42. RITUXIMAB (UNKNOWN) [Suspect]
     Active Substance: RITUXIMAB
     Dosage: 730 MG, UNK
     Route: 041
     Dates: start: 20181002, end: 20181002
  43. RITUXIMAB (UNKNOWN) [Suspect]
     Active Substance: RITUXIMAB
     Dosage: 730 MG, UNK
     Route: 041
     Dates: start: 20181018, end: 20181018
  44. RITUXIMAB (UNKNOWN) [Suspect]
     Active Substance: RITUXIMAB
     Dosage: 730 MG, UNK
     Route: 041
     Dates: start: 20190107, end: 20190107
  45. CYCLOPHOSPHAMIDE. [Suspect]
     Active Substance: CYCLOPHOSPHAMIDE
     Dosage: 781 MG, (INFUSION RATE16.6 ML/MIN FROM 12:15 TO 13:21)
     Route: 041
     Dates: start: 20181218, end: 20181218
  46. VINCRISTINE [Suspect]
     Active Substance: VINCRISTINE
     Indication: DIFFUSE LARGE B-CELL LYMPHOMA
     Dosage: 1 MG, INFUSION RATE 6.6 (ML/MIN)
     Route: 041
     Dates: start: 20181003, end: 20181003
  47. VINCRISTINE [Suspect]
     Active Substance: VINCRISTINE
     Dosage: 1 MG, (INFUSION RATE 6.6 ML/MIN FROM 10:40 TO 11:00)
     Route: 041
     Dates: start: 20181204, end: 20181204
  48. VINCRISTINE [Suspect]
     Active Substance: VINCRISTINE
     Dosage: 1 MG, (INFUSION RATE 6.6 ML/MIN FROM 10:20 TO 10:40)
     Route: 041
     Dates: start: 20181218, end: 20181218
  49. DOXORUBICIN [Suspect]
     Active Substance: DOXORUBICIN
     Dosage: 49 MG, (INFUSION RATE 2.0 ML/MIN FROM 09:12 TO 09:42)
     Route: 041
     Dates: start: 20181106, end: 20181106
  50. DOXORUBICIN [Suspect]
     Active Substance: DOXORUBICIN
     Dosage: 49 MG, (INFUSION RATE 2.0 ML/MIN FROM 10:40 TO 11:45)
     Route: 041
     Dates: start: 20181218, end: 20181218
  51. VITAMIN B12 [Concomitant]
     Active Substance: CYANOCOBALAMIN
     Indication: PROPHYLAXIS
     Dosage: UNK
     Route: 048
     Dates: start: 20181002, end: 20181101
  52. ACETYLSALICYLIC ACID [Concomitant]
     Active Substance: ASPIRIN
     Indication: CORONARY ARTERY DISEASE
     Dosage: UNK
     Route: 048
     Dates: start: 20041001

REACTIONS (18)
  - Neutrophil count decreased [Recovered/Resolved]
  - Rash [Recovered/Resolved]
  - Asthenia [Recovered/Resolved]
  - Constipation [Recovered/Resolved]
  - Hypokalaemia [Recovered/Resolved]
  - Fatigue [Not Recovered/Not Resolved]
  - Pyrexia [Recovered/Resolved]
  - Underdose [Unknown]
  - Malignant neoplasm progression [Fatal]
  - Pneumonia [Recovered/Resolved]
  - Hypertension [Recovered/Resolved]
  - Delirium [Fatal]
  - Pulmonary congestion [Recovered/Resolved]
  - Neutrophil count decreased [Recovered/Resolved]
  - Pleural effusion [Fatal]
  - Lymphadenopathy mediastinal [Fatal]
  - Neutrophil count decreased [Recovered/Resolved]
  - Diffuse large B-cell lymphoma [Fatal]

NARRATIVE: CASE EVENT DATE: 20181107
